FAERS Safety Report 13035473 (Version 1)
Quarter: 2016Q4

REPORT INFORMATION
  Report Type: Spontaneous
  Country: BR (occurrence: BR)
  Receive Date: 20161216
  Receipt Date: 20161216
  Transmission Date: 20170207
  Serious: Yes (Hospitalization)
  Sender: FDA-Public Use
  Company Number: BR-009507513-1612BRA004731

PATIENT
  Sex: Female

DRUGS (1)
  1. NUVARING [Suspect]
     Active Substance: ETHINYL ESTRADIOL\ETONOGESTREL
     Indication: AMENORRHOEA
     Dosage: 1 RING, Q3W (3 WEEKS, AND THEN REPLACED IT TO A NEWONE WITHOUT THE FREE-CONTRACEPTIVE INTERVAL)
     Route: 067
     Dates: start: 2003

REACTIONS (4)
  - Product use issue [Unknown]
  - Drug ineffective for unapproved indication [Not Recovered/Not Resolved]
  - Incorrect drug administration duration [Unknown]
  - Metrorrhagia [Not Recovered/Not Resolved]

NARRATIVE: CASE EVENT DATE: 2003
